FAERS Safety Report 4976009-6 (Version None)
Quarter: 2006Q2

REPORT INFORMATION
  Report Type: 
  Country: None (occurrence: None)
  Receive Date: 20060411
  Receipt Date: 20060329
  Transmission Date: 20061013
  Serious: Yes (Hospitalization)
  Sender: FDA-Public Use
  Company Number: 2005165630

PATIENT
  Age: 72 Year
  Sex: Female
  Weight: 79.3795 kg

DRUGS (4)
  1. SUTENT [Suspect]
     Indication: METASTATIC RENAL CELL CARCINOMA
     Dosage: 37.5 MG (37.5 MG, 1 IN 1 D), ORAL
     Route: 048
     Dates: start: 20050207, end: 20051209
  2. HYDROCHLOROTHIAZIDE [Concomitant]
  3. IRON (IRON) [Concomitant]
  4. PROCRIT [Concomitant]

REACTIONS (10)
  - ABDOMINAL DISTENSION [None]
  - ASCITES [None]
  - HAEMATOCHEZIA [None]
  - HAEMATURIA [None]
  - HYPOTHYROIDISM [None]
  - MENTAL STATUS CHANGES [None]
  - RECTAL HAEMORRHAGE [None]
  - THROMBOCYTOPENIA [None]
  - URINARY TRACT INFECTION [None]
  - UROSEPSIS [None]
